FAERS Safety Report 20699922 (Version 1)
Quarter: 2022Q2

REPORT INFORMATION
  Report Type: Report from Study
  Country: IN (occurrence: IN)
  Receive Date: 20220412
  Receipt Date: 20220412
  Transmission Date: 20220721
  Serious: Yes (Hospitalization, Other)
  Sender: FDA-Public Use
  Company Number: IN-NOVARTISPH-NVSC2021IN083959

PATIENT
  Age: 37 Year
  Sex: Male

DRUGS (12)
  1. SIMULECT [Suspect]
     Active Substance: BASILIXIMAB
     Indication: Renal transplant
     Dosage: 20 MG (1ST DOSE)
     Route: 065
     Dates: start: 20210304
  2. SIMULECT [Suspect]
     Active Substance: BASILIXIMAB
     Dosage: 20 MG (2ND DOSE)
     Route: 065
     Dates: start: 20210308, end: 20210308
  3. PREDNISOLONE [Concomitant]
     Active Substance: PREDNISOLONE
     Indication: Product used for unknown indication
     Dosage: 1 DOSAGE FORM, QD (STRENGTH: 20 (UNSPECIFIED UNITS)) FOR 5 DAYS
     Route: 065
  4. TACROLIMUS [Concomitant]
     Active Substance: TACROLIMUS
     Indication: Product used for unknown indication
     Dosage: 2.5 (UNSPECIFIED UNITS), BID
     Route: 065
  5. TACROLIMUS [Concomitant]
     Active Substance: TACROLIMUS
     Dosage: 1 DOSAGE FORM, BID (STRENGTH: 2 NG) (FOR 5 DAYS)
     Route: 065
  6. MMS [Concomitant]
     Indication: Product used for unknown indication
     Dosage: 2 DOSAGE FORM, BID (STRENGTH: 360 (UNSPECIFIED UNITS)) FOR 5 DAYS
     Route: 065
  7. COTRIMOXAZOLE [Concomitant]
     Active Substance: SULFAMETHOXAZOLE\TRIMETHOPRIM
     Indication: Product used for unknown indication
     Dosage: 1 DOSAGE FORM, QD (FOR 5 DAYS)
     Route: 065
  8. VALGANCICLOVIR [Concomitant]
     Active Substance: VALGANCICLOVIR
     Indication: Product used for unknown indication
     Dosage: 1 DOSAGE FORM, QD (4:2) (FOR 5 DAYS)
     Route: 065
  9. DILTIAZEM [Concomitant]
     Active Substance: DILTIAZEM
     Indication: Product used for unknown indication
     Dosage: 1 DOSAGE FORM, BID (STRENGTH: 30 (UNSPECIFIED UNITS)) (FOR 5 DAYS)
     Route: 065
  10. NIFEDIPINE [Concomitant]
     Active Substance: NIFEDIPINE
     Indication: Product used for unknown indication
     Dosage: 1 DOSAGE FORM, TID (STRENGTH: 10 (UNSPECIFIED UNITS)) (IF BP WAS GREATER THAN 140/90 MMHG FOR 5 DAYS
     Route: 065
  11. CAL + D [Concomitant]
     Indication: Product used for unknown indication
     Dosage: 1 DOSAGE FORM, BID (FOR 5 DAYS)
     Route: 065
  12. PANTOP D [Concomitant]
     Indication: Product used for unknown indication
     Dosage: 1 DOSAGE FORM, QD (FOR 5 DAYS)
     Route: 065

REACTIONS (9)
  - Kidney transplant rejection [Unknown]
  - Renal injury [Unknown]
  - Glomerulonephritis [Unknown]
  - Oedematous kidney [Unknown]
  - Renal tubular injury [Unknown]
  - Nephrolithiasis [Unknown]
  - Renal tubular necrosis [Unknown]
  - Polyuria [Unknown]
  - Left ventricular dysfunction [Unknown]

NARRATIVE: CASE EVENT DATE: 20210311
